FAERS Safety Report 4691761-5 (Version None)
Quarter: 2005Q2

REPORT INFORMATION
  Report Type: 
  Country: None (occurrence: None)
  Receive Date: 20050615
  Receipt Date: 20050615
  Transmission Date: 20051028
  Serious: Yes (Other)
  Sender: FDA-Public Use
  Company Number: None

PATIENT
  Age: 37 Year
  Sex: Female
  Weight: 49.8957 kg

DRUGS (1)
  1. SEASONALE [Suspect]
     Indication: MENSTRUATION IRREGULAR
     Dosage: 1 PILL DAILY ORAL
     Route: 048
     Dates: start: 20040501, end: 20050401

REACTIONS (2)
  - DRUG EFFECT DECREASED [None]
  - METRORRHAGIA [None]
